FAERS Safety Report 9255145 (Version 2)
Quarter: 2013Q2

REPORT INFORMATION
  Report Type: Spontaneous
  Country: US (occurrence: US)
  Receive Date: 20130425
  Receipt Date: 20130528
  Transmission Date: 20140414
  Serious: No
  Sender: FDA-Public Use
  Company Number: US-JNJFOC-20130409170

PATIENT
  Age: 26 Year
  Sex: Male

DRUGS (6)
  1. INVEGA [Suspect]
     Indication: PRODUCT USED FOR UNKNOWN INDICATION
     Route: 048
  2. INVEGA SUSTENNA [Suspect]
     Indication: SCHIZOPHRENIFORM DISORDER
     Route: 030
     Dates: start: 20130311, end: 20130311
  3. INVEGA SUSTENNA [Suspect]
     Indication: SCHIZOPHRENIFORM DISORDER
     Route: 030
  4. INVEGA SUSTENNA [Suspect]
     Indication: SCHIZOPHRENIFORM DISORDER
     Route: 030
     Dates: start: 20130318, end: 20130318
  5. XANAX [Concomitant]
     Indication: ANXIETY
     Route: 048
  6. SUBOXONE [Concomitant]
     Indication: DRUG DEPENDENCE
     Dosage: 8MG/2MG BID
     Route: 065

REACTIONS (2)
  - Akathisia [Recovering/Resolving]
  - Inappropriate schedule of drug administration [Unknown]
